FAERS Safety Report 7307562-5 (Version None)
Quarter: 2011Q1

REPORT INFORMATION
  Report Type: 
  Country: None (occurrence: None)
  Receive Date: 20110223
  Receipt Date: 20110218
  Transmission Date: 20110831
  Serious: Yes (Hospitalization)
  Sender: FDA-Public Use
  Company Number: US-PFIZER INC-2006064267

PATIENT
  Sex: Female
  Weight: 113 kg

DRUGS (11)
  1. ACETAMINOPHEN [Concomitant]
     Route: 048
     Dates: start: 20060222
  2. PERCOCET [Concomitant]
     Route: 048
     Dates: start: 20060213
  3. SYNTHROID [Concomitant]
     Route: 048
     Dates: start: 20060217
  4. IBUPROFEN [Concomitant]
     Route: 048
     Dates: start: 20060222
  5. ZOLOFT [Concomitant]
     Route: 048
     Dates: start: 20060126
  6. KLONOPIN [Concomitant]
     Route: 048
     Dates: start: 20060126
  7. ZOMETA [Concomitant]
     Route: 042
     Dates: start: 20060307
  8. DIFLUCAN [Concomitant]
     Route: 048
     Dates: start: 20060512
  9. CLOTRIMAZOLE [Concomitant]
     Route: 061
     Dates: start: 20060401
  10. SUNITINIB MALATE [Suspect]
     Indication: BREAST CANCER
     Dosage: 37.5 MG, 1X/DAY
     Route: 048
     Dates: start: 20060215
  11. MAGIC MOUTHWASH [Concomitant]
     Route: 048
     Dates: start: 20060401

REACTIONS (2)
  - ABDOMINAL DISCOMFORT [None]
  - FAILURE TO THRIVE [None]
